FAERS Safety Report 4334408-X (Version None)
Quarter: 2004Q1

REPORT INFORMATION
  Report Type: 
  Country: None (occurrence: None)
  Receive Date: 20040325
  Receipt Date: 20031231
  Transmission Date: 20041129
  Serious: No
  Sender: FDA-Public Use
  Company Number: USA040155694

PATIENT
  Age: 59 Year
  Sex: Female

DRUGS (6)
  1. FORTEO [Suspect]
     Indication: OSTEOPOROSIS
     Dosage: 20 UG/DAY
     Dates: start: 20031101
  2. NABUMETONE [Concomitant]
  3. TRAZADONE (TRAZODONE) [Concomitant]
  4. CELEXA [Concomitant]
  5. LORAZEPAM [Concomitant]
  6. LIPITOR [Concomitant]

REACTIONS (7)
  - ARTHRALGIA [None]
  - DIZZINESS [None]
  - FATIGUE [None]
  - HEADACHE [None]
  - MENTAL DISORDER [None]
  - MYALGIA [None]
  - PALPITATIONS [None]
